FAERS Safety Report 5673993-2 (Version None)
Quarter: 2008Q1

REPORT INFORMATION
  Report Type: 
  Country: None (occurrence: None)
  Receive Date: 20080319
  Receipt Date: 20080319
  Transmission Date: 20080703
  Serious: Yes (Hospitalization)
  Sender: FDA-Public Use
  Company Number: None

PATIENT
  Age: 66 Year
  Sex: Male
  Weight: 96 kg

DRUGS (9)
  1. OXYCONTIN [Suspect]
     Indication: PAIN
     Dosage: 10MG BID PO  TOOK 1ST DOSE ONLY
     Route: 048
  2. OXYCODONE HCL [Suspect]
     Indication: PAIN
     Dosage: 10MG PRN PO  CHRONIC, BUT INCREASED DOSE
     Route: 048
  3. LIQUID MORPHINE [Concomitant]
  4. MAG OX [Concomitant]
  5. PEPCID [Concomitant]
  6. LEVAQUIN [Concomitant]
  7. ASPIRIN [Concomitant]
  8. FOLFOX [Concomitant]
  9. AMBIEN [Concomitant]

REACTIONS (4)
  - APNOEA [None]
  - DYSPNOEA [None]
  - LETHARGY [None]
  - MENTAL STATUS CHANGES [None]
